FAERS Safety Report 4731214-9 (Version None)
Quarter: 2005Q3

REPORT INFORMATION
  Report Type: 
  Country: None (occurrence: None)
  Receive Date: 20050802
  Receipt Date: 20050721
  Transmission Date: 20060218
  Serious: Yes (Hospitalization, Other)
  Sender: FDA-Public Use
  Company Number: GB-JNJFOC-20050704203

PATIENT
  Sex: Female
  Weight: 60 kg

DRUGS (7)
  1. REMICADE [Suspect]
     Indication: RHEUMATOID ARTHRITIS
     Route: 042
     Dates: start: 20041119
  2. METHOTREXATE [Concomitant]
     Route: 065
  3. FOLIC ACID [Concomitant]
     Route: 065
  4. LANSOPRAZOLE [Concomitant]
     Route: 065
  5. FLUOXETINE [Concomitant]
     Route: 065
  6. FOSAMAX [Concomitant]
     Route: 065
  7. TRAMADOL [Concomitant]
     Route: 065

REACTIONS (2)
  - FALL [None]
  - UPPER LIMB FRACTURE [None]
